FAERS Safety Report 24218591 (Version 1)
Quarter: 2024Q3

REPORT INFORMATION
  Report Type: Spontaneous
  Country: US (occurrence: US)
  Receive Date: 20240816
  Receipt Date: 20240816
  Transmission Date: 20241017
  Serious: No
  Sender: TEVA
  Company Number: US-TEVA-VS-3229141

PATIENT
  Age: 26 Year
  Sex: Female

DRUGS (4)
  1. ADDERALL [Suspect]
     Active Substance: AMPHETAMINE ASPARTATE\AMPHETAMINE SULFATE\DEXTROAMPHETAMINE SACCHARATE\DEXTROAMPHETAMINE SULFATE
     Indication: Product used for unknown indication
     Route: 065
  2. ADDERALL [Suspect]
     Active Substance: AMPHETAMINE ASPARTATE\AMPHETAMINE SULFATE\DEXTROAMPHETAMINE SACCHARATE\DEXTROAMPHETAMINE SULFATE
     Indication: Product used for unknown indication
     Route: 065
  3. VITAMIN D3 (VITAMIN D3) 2000IU [Concomitant]
     Dates: start: 20240528
  4. ADVIL [IBUPROFEN] 200 MG [Concomitant]
     Dates: start: 20090601

REACTIONS (8)
  - Dry eye [Unknown]
  - Headache [Recovered/Resolved]
  - Agitation [Unknown]
  - Anxiety [Recovered/Resolved]
  - Panic attack [Recovered/Resolved]
  - Dry mouth [Unknown]
  - Irritability [Recovered/Resolved]
  - Anger [Recovered/Resolved]

NARRATIVE: CASE EVENT DATE: 20240601
